FAERS Safety Report 4947357-0 (Version None)
Quarter: 2006Q1

REPORT INFORMATION
  Report Type: 
  Country: None (occurrence: None)
  Receive Date: 20060317
  Receipt Date: 20051013
  Transmission Date: 20060701
  Serious: Yes (Hospitalization)
  Sender: FDA-Public Use
  Company Number: PR-MERCK-0510USA07203

PATIENT
  Age: 50 Year
  Sex: Male
  Weight: 95 kg

DRUGS (11)
  1. VIOXX [Suspect]
     Indication: BACK PAIN
     Route: 048
     Dates: start: 20010201, end: 20040701
  2. PAXIL [Concomitant]
     Indication: ANTIDEPRESSANT THERAPY
     Route: 065
     Dates: start: 20030115, end: 20040823
  3. LOTREL [Concomitant]
     Indication: HYPERTENSION
     Route: 065
     Dates: start: 20020903
  4. LOPRESSOR [Concomitant]
     Route: 065
  5. CARDURA [Concomitant]
     Route: 065
  6. CELEBREX [Concomitant]
     Indication: BACK PAIN
     Route: 065
     Dates: start: 19991022, end: 20041216
  7. KETOROLAC TROMETHAMINE [Concomitant]
     Indication: ANTIINFLAMMATORY THERAPY
     Route: 065
     Dates: start: 20001113
  8. ZITHROMAX [Concomitant]
     Route: 065
     Dates: start: 20010830, end: 20050319
  9. DOXAZOSIN MESYLATE [Concomitant]
     Indication: BLOOD PRESSURE
     Route: 065
     Dates: start: 20021202
  10. ACTOS [Concomitant]
     Indication: DIABETES MELLITUS
     Route: 065
     Dates: start: 20040728, end: 20040927
  11. AMBIEN [Concomitant]
     Indication: SLEEP DISORDER
     Route: 065
     Dates: start: 19990909, end: 20011016

REACTIONS (5)
  - DIABETES MELLITUS [None]
  - HYPERTENSION [None]
  - MYOCARDIAL INFARCTION [None]
  - PRESCRIBED OVERDOSE [None]
  - SLEEP APNOEA SYNDROME [None]
